FAERS Safety Report 7799641-3 (Version None)
Quarter: 2011Q4

REPORT INFORMATION
  Report Type: 
  Country: None (occurrence: None)
  Receive Date: 20111006
  Receipt Date: 20110930
  Transmission Date: 20120403
  Serious: Yes (Life-Threatening, Hospitalization, Other)
  Sender: FDA-Public Use
  Company Number: DE-BRISTOL-MYERS SQUIBB COMPANY-13936356

PATIENT
  Age: 42 Year
  Sex: Female
  Weight: 86 kg

DRUGS (9)
  1. ARANESP [Suspect]
     Indication: BREAST CANCER
     Dates: start: 20070614, end: 20070824
  2. GRANISETRON [Suspect]
     Indication: PROPHYLAXIS
     Dosage: ON DAY 0 TO 3
     Route: 048
     Dates: start: 20070613, end: 20070930
  3. TAXOL [Suspect]
     Indication: BREAST CANCER
     Dosage: 40 MG/M2 (09-AUG-2007 TO 27-SEP-2007), WEEKLY.
     Route: 042
     Dates: start: 20070809, end: 20071010
  4. CYCLOPHOSPHAMIDE [Suspect]
     Indication: BREAST CANCER
     Route: 042
     Dates: start: 20070614, end: 20070726
  5. DEXAMETHASONE [Suspect]
     Indication: PROPHYLAXIS
     Dosage: DAILY ON DAY 1 TO 4, 4MG (13-JUN-2007 TO 30-SEP-2007).
  6. RANITIDINE [Suspect]
     Indication: ANTIALLERGIC THERAPY
     Dosage: 1 DF= 50 UNITS NOS, ONCE A DAY ON DAY 1
  7. EPIRUBICIN [Suspect]
     Indication: BREAST CANCER
     Route: 042
     Dates: start: 20070614, end: 20070726
  8. IBUPROFEN [Concomitant]
     Route: 048
     Dates: start: 20071004, end: 20071004
  9. CAPECITABINE [Suspect]
     Indication: BREAST CANCER
     Dosage: 500 MG/M2 (09-AUG-2007 TO 27-SEP-2007), TWICE DAILY.
     Route: 048
     Dates: start: 20070809, end: 20071010

REACTIONS (1)
  - INTRACRANIAL VENOUS SINUS THROMBOSIS [None]
